FAERS Safety Report 5360055-7 (Version None)
Quarter: 2007Q2

REPORT INFORMATION
  Report Type: 
  Country: None (occurrence: None)
  Receive Date: 20070618
  Receipt Date: 20070403
  Transmission Date: 20071010
  Serious: No
  Sender: FDA-Public Use
  Company Number: US-ASTRAZENECA-2007UW06610

PATIENT
  Age: 66 Year
  Sex: Female

DRUGS (3)
  1. FASLODEX [Suspect]
     Indication: BREAST CANCER FEMALE
     Route: 030
  2. SUPPLEMENTS [Concomitant]
  3. ZOMETA [Concomitant]

REACTIONS (4)
  - INJECTION SITE PAIN [None]
  - PREMATURE AGEING [None]
  - SKIN WRINKLING [None]
  - SOMNOLENCE [None]
